FAERS Safety Report 8571252-1 (Version None)
Quarter: 2012Q3

REPORT INFORMATION
  Report Type: 
  Country: None (occurrence: None)
  Receive Date: 20120806
  Receipt Date: 20120727
  Transmission Date: 20120928
  Serious: No
  Sender: FDA-Public Use
  Company Number: US-009507513-2012SP034487

PATIENT

DRUGS (9)
  1. BOCEPREVIR [Suspect]
     Indication: HEPATITIS C
     Dosage: 800 MG, TID
     Route: 048
  2. ESTRADIOL (+) NORETHINDRONE [Concomitant]
     Indication: PRODUCT USED FOR UNKNOWN INDICATION
     Dosage: 0.5-0.1
  3. TYLENOL (CAPLET) [Concomitant]
     Indication: PRODUCT USED FOR UNKNOWN INDICATION
     Dosage: 325 MG, UNK
  4. REBETOL [Suspect]
     Indication: HEPATITIS C
     Dosage: 200 MG, UNKNOWN
     Route: 065
  5. NEUPOGEN [Concomitant]
     Indication: PRODUCT USED FOR UNKNOWN INDICATION
     Dosage: 300/0.5
  6. PROCHLORPERAZINE [Concomitant]
     Indication: PRODUCT USED FOR UNKNOWN INDICATION
     Dosage: 10 MG, UNK
  7. PROCRIT [Concomitant]
     Indication: PRODUCT USED FOR UNKNOWN INDICATION
     Dosage: 40000/ML
  8. PEG-INTRON [Suspect]
     Indication: HEPATITIS C
     Dosage: 150 ?G, UNKNOWN
     Route: 065
  9. PROZAC [Concomitant]
     Indication: PRODUCT USED FOR UNKNOWN INDICATION
     Dosage: 10 MG, UNKNOWN
     Route: 065

REACTIONS (10)
  - DIZZINESS [None]
  - CONSTIPATION [None]
  - ASTHENIA [None]
  - DYSPNOEA [None]
  - PALPITATIONS [None]
  - PYREXIA [None]
  - NAUSEA [None]
  - RETCHING [None]
  - INFLUENZA LIKE ILLNESS [None]
  - FATIGUE [None]
